FAERS Safety Report 6030141-7 (Version None)
Quarter: 2009Q1

REPORT INFORMATION
  Report Type: 
  Country: None (occurrence: None)
  Receive Date: 20090107
  Receipt Date: 20081226
  Transmission Date: 20090719
  Serious: Yes (Hospitalization)
  Sender: FDA-Public Use
  Company Number: JP-MERCK-0812USA02679

PATIENT
  Age: 79 Year
  Sex: Male

DRUGS (2)
  1. PEPCID RPD [Suspect]
     Route: 048
     Dates: end: 20081208
  2. [THERAPY UNSPECIFIED] [Concomitant]
     Route: 065

REACTIONS (1)
  - PSYCHIATRIC SYMPTOM [None]
